FAERS Safety Report 7799488-8 (Version None)
Quarter: 2011Q4

REPORT INFORMATION
  Report Type: 
  Country: None (occurrence: None)
  Receive Date: 20111004
  Receipt Date: 20110921
  Transmission Date: 20120403
  Serious: Yes (Other)
  Sender: FDA-Public Use
  Company Number: US-2011-10335

PATIENT
  Age: 75 Year

DRUGS (1)
  1. SAMSCA [Suspect]
     Indication: HYPONATRAEMIA
     Dosage: 15 MG MILLIGRAM(S), SINGLE, ORAL
     Route: 048
     Dates: start: 20110505, end: 20110505

REACTIONS (5)
  - RAPID CORRECTION OF HYPONATRAEMIA [None]
  - THERAPY REGIMEN CHANGED [None]
  - PARAESTHESIA [None]
  - DYSARTHRIA [None]
  - POLYURIA [None]
